FAERS Safety Report 13587484 (Version 1)
Quarter: 2017Q2

REPORT INFORMATION
  Report Type: Spontaneous
  Country: US (occurrence: US)
  Receive Date: 20170526
  Receipt Date: 20170526
  Transmission Date: 20170830
  Serious: Yes (Other)
  Sender: FDA-Public Use
  Company Number: US-TEVA-771216USA

PATIENT
  Sex: Female

DRUGS (1)
  1. PREDNISONE. [Suspect]
     Active Substance: PREDNISONE
     Indication: URTICARIA

REACTIONS (2)
  - Adverse event [Unknown]
  - Multiple fractures [Unknown]
